FAERS Safety Report 5691736-3 (Version None)
Quarter: 2008Q1

REPORT INFORMATION
  Report Type: 
  Country: None (occurrence: None)
  Receive Date: 20080331
  Receipt Date: 20080324
  Transmission Date: 20080703
  Serious: Yes (Other)
  Sender: FDA-Public Use
  Company Number: 2008-00971

PATIENT
  Age: 45 Year
  Sex: Female

DRUGS (2)
  1. VELCADE [Suspect]
     Indication: DRUG USE FOR UNKNOWN INDICATION
  2. DOXORUBICIN HCL [Suspect]
     Indication: DRUG USE FOR UNKNOWN INDICATION

REACTIONS (8)
  - ANAEMIA [None]
  - CONGESTIVE CARDIOMYOPATHY [None]
  - CONTUSION [None]
  - FALL [None]
  - FULL BLOOD COUNT ABNORMAL [None]
  - LEUKOCYTOSIS [None]
  - MARROW HYPERPLASIA [None]
  - THROMBOCYTOPENIA [None]
